FAERS Safety Report 18388692 (Version 5)
Quarter: 2021Q2

REPORT INFORMATION
  Report Type: Report from Study
  Country: US (occurrence: US)
  Receive Date: 20201015
  Receipt Date: 20210408
  Transmission Date: 20210717
  Serious: No
  Sender: FDA-Public Use
  Company Number: NVSC2020US278145

PATIENT
  Age: 54 Year
  Sex: Female

DRUGS (4)
  1. COSENTYX [Suspect]
     Active Substance: SECUKINUMAB
     Indication: PSORIATIC ARTHROPATHY
     Dosage: 300 MG, QW (FOR FIVE WEEKS AND WEEKLY FOR FIVE WEEKS AND THEN Q4W)
     Route: 058
     Dates: start: 20200819
  2. COSENTYX [Suspect]
     Active Substance: SECUKINUMAB
     Dosage: 300 MG, Q4W
     Route: 058
     Dates: start: 20200923
  3. COSENTYX [Suspect]
     Active Substance: SECUKINUMAB
     Dosage: 300 MG, UNKNOWN
     Route: 058
     Dates: start: 202010
  4. COSENTYX [Suspect]
     Active Substance: SECUKINUMAB
     Dosage: 300 MG (300 MG Q WEEK FOR FIVE WEEKS AND THEN Q4 WEEKS)
     Route: 058
     Dates: start: 20200719

REACTIONS (8)
  - Fatigue [Unknown]
  - Pain [Unknown]
  - Drug ineffective [Unknown]
  - Psoriasis [Unknown]
  - Arthralgia [Unknown]
  - Spinal pain [Unknown]
  - Ear infection [Unknown]
  - Inflammation [Unknown]

NARRATIVE: CASE EVENT DATE: 20200923
